FAERS Safety Report 15657025 (Version 5)
Quarter: 2019Q3

REPORT INFORMATION
  Report Type: Spontaneous
  Country: DE (occurrence: DE)
  Receive Date: 20181126
  Receipt Date: 20190715
  Transmission Date: 20191004
  Serious: Yes (Death, Other)
  Sender: FDA-Public Use
  Company Number: PHHY2018DE165026

PATIENT
  Age: 61 Year
  Sex: Male

DRUGS (3)
  1. ARGATROBAN. [Suspect]
     Active Substance: ARGATROBAN
     Dosage: 2 (MCG/KG/MIN), UNK
     Route: 065
  2. ARGATROBAN. [Suspect]
     Active Substance: ARGATROBAN
     Indication: ANTICOAGULANT THERAPY
     Dosage: 0.5 (MCG/KG/MIN), UNK
     Route: 051
  3. HEPARIN [Suspect]
     Active Substance: HEPARIN SODIUM
     Indication: ANTICOAGULANT THERAPY
     Dosage: 30 IU/KG, UNK
     Route: 042

REACTIONS (3)
  - Multiple organ dysfunction syndrome [Fatal]
  - Heparin-induced thrombocytopenia [Fatal]
  - Intracardiac thrombus [Unknown]
